FAERS Safety Report 9858525 (Version 2)
Quarter: 2014Q1

REPORT INFORMATION
  Report Type: Spontaneous
  Country: SE (occurrence: SE)
  Receive Date: 20140131
  Receipt Date: 20140307
  Transmission Date: 20141002
  Serious: Yes (Disabling)
  Sender: FDA-Public Use
  Company Number: SE-NOVOPROD-398543

PATIENT
  Age: 65 Year
  Sex: Female

DRUGS (14)
  1. VICTOZA [Suspect]
     Indication: TYPE 2 DIABETES MELLITUS
     Dosage: UNK
     Route: 058
     Dates: start: 20110922, end: 20130110
  2. PANTOPRAZOLE [Concomitant]
     Dosage: UNK
     Dates: start: 20120427
  3. NOVORAPID [Concomitant]
     Dosage: INJECTION
  4. LANTUS [Concomitant]
     Dosage: UNK INJECTION
     Dates: start: 20110228
  5. CLOPIDOGREL [Concomitant]
     Dosage: UNK
     Dates: start: 20120323
  6. ESIDREX [Concomitant]
     Dosage: UNK
     Dates: start: 20110922
  7. METOPROLOL [Concomitant]
     Dosage: UNK
     Dates: start: 20130323
  8. AMLODIPINE [Concomitant]
     Dosage: UNK
     Dates: start: 20110711
  9. SIMVASTATIN [Concomitant]
     Dosage: UNK
     Dates: start: 20130326
  10. IBUMETIN [Concomitant]
     Dosage: UNK
     Dates: start: 20120925
  11. PANODIL [Concomitant]
     Dosage: UNK
     Dates: start: 20110531
  12. SAROTEN [Concomitant]
     Dosage: UNK
     Dates: start: 20131010
  13. NASONEX [Concomitant]
     Dosage: UNK
     Dates: start: 20130708
  14. KESTINE [Concomitant]
     Dosage: UNK
     Dates: start: 20130708

REACTIONS (8)
  - Visual impairment [Not Recovered/Not Resolved]
  - Diarrhoea haemorrhagic [Not Recovered/Not Resolved]
  - Mucous stools [Not Recovered/Not Resolved]
  - Weight decreased [Not Recovered/Not Resolved]
  - Constipation [Not Recovered/Not Resolved]
  - Vomiting [Not Recovered/Not Resolved]
  - Abdominal pain [Not Recovered/Not Resolved]
  - Headache [Not Recovered/Not Resolved]
